FAERS Safety Report 6494899-5 (Version None)
Quarter: 2009Q4

REPORT INFORMATION
  Report Type: 
  Country: None (occurrence: None)
  Receive Date: 20091214
  Receipt Date: 20090407
  Transmission Date: 20100525
  Serious: No
  Sender: FDA-Public Use
  Company Number: US-BRISTOL-MYERS SQUIBB COMPANY-14577902

PATIENT
  Age: 44 Year
  Sex: Female
  Weight: 82 kg

DRUGS (4)
  1. ABILIFY [Suspect]
     Indication: BIPOLAR DISORDER
     Dosage: STARTED ABOUT 6-7 MONTHS AGO.
     Dates: start: 20080101
  2. ABILIFY [Suspect]
     Indication: DEPRESSION
     Dosage: STARTED ABOUT 6-7 MONTHS AGO.
     Dates: start: 20080101
  3. PROZAC [Concomitant]
     Dosage: STOPPED 2 WEEKS AGO
     Dates: end: 20090101
  4. LYRICA [Concomitant]

REACTIONS (1)
  - DRUG INEFFECTIVE [None]
